FAERS Safety Report 6208372-2 (Version None)
Quarter: 2009Q2

REPORT INFORMATION
  Report Type: 
  Country: None (occurrence: None)
  Receive Date: 20090529
  Receipt Date: 20090521
  Transmission Date: 20091009
  Serious: Yes (Hospitalization)
  Sender: FDA-Public Use
  Company Number: US-BIOGENIDEC-2009BI012518

PATIENT
  Age: 50 Year
  Sex: Female

DRUGS (1)
  1. AVONEX [Suspect]
     Indication: MULTIPLE SCLEROSIS
     Route: 030
     Dates: start: 20010323

REACTIONS (5)
  - ASTHENIA [None]
  - COMA [None]
  - FATIGUE [None]
  - LETHARGY [None]
  - PNEUMONIA STAPHYLOCOCCAL [None]
